FAERS Safety Report 8139979-3 (Version None)
Quarter: 2012Q1

REPORT INFORMATION
  Report Type: 
  Country: None (occurrence: None)
  Receive Date: 20120215
  Receipt Date: 20120213
  Transmission Date: 20120608
  Serious: Yes (Hospitalization, Disabling, Other)
  Sender: FDA-Public Use
  Company Number: US-MERCK-1107USA03465

PATIENT
  Age: 56 Year
  Sex: Female
  Weight: 64 kg

DRUGS (9)
  1. CALCIUM (UNSPECIFIED) AND VITAMIN D (UNSPECIFIED) [Concomitant]
     Indication: VITAMIN D DEFICIENCY
     Route: 065
     Dates: start: 19990101
  2. VITAMIN E [Concomitant]
     Route: 065
     Dates: start: 19990101
  3. FOSAMAX [Suspect]
     Indication: OSTEOPENIA
     Route: 048
     Dates: start: 20020401, end: 20071201
  4. ESOMEPRAZOLE [Concomitant]
     Route: 065
     Dates: start: 20020101
  5. RECLAST [Suspect]
     Indication: OSTEOPENIA
     Route: 041
     Dates: start: 20100901, end: 20110201
  6. FOSAMAX [Suspect]
     Route: 048
     Dates: start: 20020301
  7. CALCIUM (UNSPECIFIED) AND VITAMIN D (UNSPECIFIED) [Concomitant]
     Indication: BLOOD CALCIUM DECREASED
     Route: 065
     Dates: start: 19990101
  8. FOSAMAX PLUS D [Suspect]
     Indication: OSTEOPENIA
     Route: 048
     Dates: start: 20080129, end: 20081110
  9. ALENDRONATE SODIUM [Suspect]
     Indication: OSTEOPENIA
     Route: 048
     Dates: start: 20090209, end: 20100801

REACTIONS (30)
  - STRESS FRACTURE [None]
  - MUSCLE SPASMS [None]
  - UPPER-AIRWAY COUGH SYNDROME [None]
  - OSTEOARTHRITIS [None]
  - BACK PAIN [None]
  - ARTHRITIS [None]
  - HYPONATRAEMIA [None]
  - MOUTH ULCERATION [None]
  - RIB FRACTURE [None]
  - HELICOBACTER INFECTION [None]
  - INTERVERTEBRAL DISC DEGENERATION [None]
  - HYPOKALAEMIA [None]
  - GASTRIC POLYPS [None]
  - OROPHARYNGEAL PAIN [None]
  - SINUS CONGESTION [None]
  - FRACTURE DELAYED UNION [None]
  - PAIN IN EXTREMITY [None]
  - SLEEP APNOEA SYNDROME [None]
  - GINGIVAL DISORDER [None]
  - ARTHRALGIA [None]
  - FEMUR FRACTURE [None]
  - ANXIETY [None]
  - MUSCULOSKELETAL CHEST PAIN [None]
  - DYSURIA [None]
  - NERVE ROOT LESION [None]
  - IMPAIRED HEALING [None]
  - BREAST CALCIFICATIONS [None]
  - OSTEOPOROSIS [None]
  - RADICULOPATHY [None]
  - DYSPNOEA EXERTIONAL [None]
